FAERS Safety Report 7028355-2 (Version None)
Quarter: 2010Q4

REPORT INFORMATION
  Report Type: 
  Country: None (occurrence: None)
  Receive Date: 20101005
  Receipt Date: 20100920
  Transmission Date: 20110411
  Serious: Yes (Hospitalization, Congenital Anomaly, Other)
  Sender: FDA-Public Use
  Company Number: US-ROCHE-725299

PATIENT
  Age: 8 Year
  Sex: Female

DRUGS (1)
  1. ACCUTANE [Suspect]
     Indication: ACNE
     Route: 064
     Dates: start: 20010101, end: 20010101

REACTIONS (8)
  - ARTHROPATHY [None]
  - CHOLESTEATOMA [None]
  - CONSTIPATION [None]
  - CONVULSION [None]
  - HYPOTONIA [None]
  - INNER EAR DISORDER [None]
  - RETINAL DISORDER [None]
  - TERATOGENICITY [None]
